FAERS Safety Report 4831206-5 (Version None)
Quarter: 2005Q4

REPORT INFORMATION
  Report Type: 
  Country: None (occurrence: None)
  Receive Date: 20051118
  Receipt Date: 20051109
  Transmission Date: 20060501
  Serious: Yes (Other)
  Sender: FDA-Public Use
  Company Number: 2005AC01811

PATIENT
  Age: 48 Year
  Sex: Male
  Weight: 36 kg

DRUGS (6)
  1. PROPOFOL [Suspect]
     Indication: ANAESTHESIA
  2. PROPOFOL [Interacting]
     Dosage: ADDITIONAL DOSE AFTER SEIZURE
  3. BACLOFEN [Interacting]
     Indication: MUSCLE SPASMS
     Dosage: LAST DOSE 6 HOURS BEFORE SURGERY
     Route: 048
  4. GLYCOPYRROLATE [Concomitant]
     Indication: PREMEDICATION
     Dosage: 1 HOUR BEFORE SURGERY
     Route: 030
  5. MEPERIDINE [Concomitant]
     Indication: ANAESTHESIA
     Route: 042
  6. LIDOCAINE [Concomitant]
     Indication: ANAESTHESIA

REACTIONS (6)
  - DRUG INTERACTION [None]
  - HYDROCEPHALUS [None]
  - LOSS OF CONSCIOUSNESS [None]
  - MYOCLONIC EPILEPSY [None]
  - NERVOUS SYSTEM DISORDER [None]
  - SPINAL COLUMN STENOSIS [None]
